FAERS Safety Report 9197597 (Version 1)
Quarter: 2013Q1

REPORT INFORMATION
  Report Type: Report from Study
  Country: IT (occurrence: IT)
  Receive Date: 20130328
  Receipt Date: 20130328
  Transmission Date: 20140127
  Serious: Yes (Hospitalization)
  Sender: FDA-Public Use
  Company Number: IT-GLAXOSMITHKLINE-B0878543A

PATIENT
  Age: 55 Year
  Sex: Male

DRUGS (2)
  1. PAZOPANIB [Suspect]
     Indication: OVARIAN CANCER
     Route: 048
     Dates: start: 20130219
  2. PACLITAXEL [Suspect]
     Indication: OVARIAN CANCER
     Route: 042
     Dates: start: 20130219

REACTIONS (2)
  - Post procedural complication [Unknown]
  - Hypertransaminasaemia [Not Recovered/Not Resolved]
